FAERS Safety Report 8557001-1 (Version None)
Quarter: 2012Q3

REPORT INFORMATION
  Report Type: 
  Country: None (occurrence: None)
  Receive Date: 20120801
  Receipt Date: 20120727
  Transmission Date: 20120928
  Serious: Yes (Life-Threatening, Hospitalization, Disabling, Other)
  Sender: FDA-Public Use
  Company Number: CA-JNJFOC-20120612433

PATIENT
  Sex: Male
  Weight: 90 kg

DRUGS (13)
  1. OLANZAPINE [Suspect]
     Indication: ACUTE PSYCHOSIS
     Dosage: EVERY NIGHT
     Route: 048
  2. OLANZAPINE [Suspect]
     Dosage: EVERY NIGHT AT BED TIME X EVERY 2 WEEKS
     Route: 048
     Dates: end: 20120201
  3. INVEGA SUSTENNA [Suspect]
     Dosage: 4/52
     Route: 030
     Dates: end: 20120622
  4. INVEGA SUSTENNA [Suspect]
     Route: 030
     Dates: start: 20120424
  5. INVEGA SUSTENNA [Suspect]
     Route: 030
     Dates: start: 20120327
  6. RISPERDAL CONSTA [Suspect]
     Route: 030
     Dates: start: 20110501
  7. RISPERDAL CONSTA [Suspect]
     Route: 030
     Dates: start: 20120313
  8. INVEGA SUSTENNA [Suspect]
     Indication: SCHIZOPHRENIA
     Dosage: INITIATED AN DAY-8, AFTER INITIATION DOSE
     Route: 030
     Dates: start: 20120522
  9. OLANZAPINE [Suspect]
     Dosage: EVERY NIGHT X ONCE EVERY 2 WEEKS
     Route: 048
     Dates: start: 20120112
  10. RISPERDAL CONSTA [Suspect]
     Indication: PRODUCT USED FOR UNKNOWN INDICATION
     Route: 030
     Dates: start: 20110515
  11. CELEXA [Suspect]
     Indication: PRODUCT USED FOR UNKNOWN INDICATION
     Dosage: EVERY DAY BEFORE NOON
     Route: 048
     Dates: start: 20111101
  12. CELEXA [Suspect]
     Route: 048
     Dates: end: 20120315
  13. RISPERIDONE [Suspect]
     Indication: PRODUCT USED FOR UNKNOWN INDICATION
     Route: 048

REACTIONS (3)
  - SUICIDE ATTEMPT [None]
  - SURGERY [None]
  - MULTIPLE FRACTURES [None]
